FAERS Safety Report 15938546 (Version 1)
Quarter: 2019Q1

REPORT INFORMATION
  Report Type: Spontaneous
  Country: US (occurrence: US)
  Receive Date: 20190208
  Receipt Date: 20190208
  Transmission Date: 20190417
  Serious: No
  Sender: FDA-Public Use
  Company Number: US-ROCHE-2156773

PATIENT
  Age: 77 Year
  Sex: Female
  Weight: 76.27 kg

DRUGS (10)
  1. XOLAIR [Suspect]
     Active Substance: OMALIZUMAB
     Dosage: ONE SHOT IN EACH ARM ;ONGOING: NO
     Route: 065
     Dates: start: 2018, end: 2018
  2. XOLAIR [Suspect]
     Active Substance: OMALIZUMAB
     Dosage: ONE SHOT IN EACH ARM ;ONGOING: YES?LATEST SHOT: 17/MAY/2018
     Route: 065
     Dates: start: 2018
  3. ZYRTEC [Concomitant]
     Active Substance: CETIRIZINE HYDROCHLORIDE
     Indication: HYPERSENSITIVITY
     Dosage: NO
     Route: 048
     Dates: start: 201707
  4. ZYRTEC [Concomitant]
     Active Substance: CETIRIZINE HYDROCHLORIDE
     Dosage: YES
     Route: 048
     Dates: start: 20180714
  5. XOLAIR [Suspect]
     Active Substance: OMALIZUMAB
     Indication: CHRONIC SPONTANEOUS URTICARIA
     Dosage: ONE SHOT IN EACH ARM ;ONGOING: NO
     Route: 065
     Dates: start: 201707, end: 201802
  6. XOLAIR [Suspect]
     Active Substance: OMALIZUMAB
     Dosage: SHOT IN EACH ARM ;ONGOING: NO
     Route: 065
     Dates: start: 201802, end: 2018
  7. XOLAIR [Suspect]
     Active Substance: OMALIZUMAB
     Dosage: ONE SHOT IN EACH ARM ;ONGOING: NO
     Route: 065
     Dates: start: 2018, end: 2018
  8. XOLAIR [Suspect]
     Active Substance: OMALIZUMAB
     Dosage: ONE SHOT IN EACH ARM ;ONGOING: NO
     Route: 065
     Dates: start: 2018, end: 2018
  9. HYDROXYZINE [Concomitant]
     Active Substance: HYDROXYZINE HYDROCHLORIDE
     Indication: PRURITUS
     Dosage: CAN TAKE IT EVERY 6 HOURS ;ONGOING: YES
     Route: 048
     Dates: start: 20180714
  10. ZYRTEC [Concomitant]
     Active Substance: CETIRIZINE HYDROCHLORIDE
     Dosage: NO
     Route: 048
     Dates: end: 20180713

REACTIONS (3)
  - Breast pain [Not Recovered/Not Resolved]
  - Breast mass [Not Recovered/Not Resolved]
  - Urticaria [Recovering/Resolving]

NARRATIVE: CASE EVENT DATE: 201805
